FAERS Safety Report 20017281 (Version 1)
Quarter: 2021Q4

REPORT INFORMATION
  Report Type: Spontaneous
  Country: US (occurrence: US)
  Receive Date: 20211030
  Receipt Date: 20211030
  Transmission Date: 20220303
  Serious: No
  Sender: FDA-Public Use
  Company Number: US-drreddys-SPO/USA/21/0143227

PATIENT
  Age: 14 Year
  Sex: Male

DRUGS (3)
  1. ZENATANE [Suspect]
     Active Substance: ISOTRETINOIN
     Indication: Product used for unknown indication
     Dosage: RMA ISSUE DATE:14 APRIL 2021 4:50:17 PM
  2. ZENATANE [Suspect]
     Active Substance: ISOTRETINOIN
     Dosage: RMA ISSUE DATE:19 MAY 2021 3:51:17 PM,16 JUNE 2021 12:50:06 PM,27 JULY 2021 1:50:36 PM
  3. ZENATANE [Suspect]
     Active Substance: ISOTRETINOIN
     Dosage: RMA ISSUE DATE:9 SEPTEMBER 2021 8:15:25 PM
     Dates: start: 20210414, end: 20211027

REACTIONS (1)
  - Treatment noncompliance [Unknown]
